FAERS Safety Report 19041174 (Version 2)
Quarter: 2021Q3

REPORT INFORMATION
  Report Type: Spontaneous
  Country: US (occurrence: US)
  Receive Date: 20210323
  Receipt Date: 20210820
  Transmission Date: 20211014
  Serious: Yes (Other)
  Sender: FDA-Public Use
  Company Number: US-DRREDDYS-USA/USA/21/0133172

PATIENT
  Age: 26 Year
  Sex: Male

DRUGS (4)
  1. GEMCITABINE. [Suspect]
     Active Substance: GEMCITABINE
     Indication: EPITHELIOID SARCOMA
     Dosage: ON DAYS 1 AND 8, 3 CYCLES
  2. GEMCITABINE. [Suspect]
     Active Substance: GEMCITABINE
     Indication: ANGIOSARCOMA
  3. DOCETAXEL. [Suspect]
     Active Substance: DOCETAXEL
     Indication: EPITHELIOID SARCOMA
  4. DOCETAXEL. [Suspect]
     Active Substance: DOCETAXEL
     Indication: ANGIOSARCOMA
     Dosage: 100 MG/M2 ON DAY 8, 3 CYCLES

REACTIONS (1)
  - Dermatitis [Unknown]
